FAERS Safety Report 7394751-7 (Version None)
Quarter: 2011Q2

REPORT INFORMATION
  Report Type: 
  Country: None (occurrence: None)
  Receive Date: 20110405
  Receipt Date: 20110329
  Transmission Date: 20111010
  Serious: Yes (Other)
  Sender: FDA-Public Use
  Company Number: US-SANOFI-AVENTIS-2011SA019877

PATIENT
  Age: 65 Year
  Sex: Male

DRUGS (1)
  1. PLAVIX [Suspect]
     Route: 065
     Dates: start: 19980101, end: 20091008

REACTIONS (1)
  - CARDIAC VALVE DISEASE [None]
